FAERS Safety Report 5757041-1 (Version None)
Quarter: 2008Q2

REPORT INFORMATION
  Report Type: 
  Country: None (occurrence: None)
  Receive Date: 20080603
  Receipt Date: 20080522
  Transmission Date: 20081010
  Serious: Yes (Other)
  Sender: FDA-Public Use
  Company Number: B0360933A

PATIENT
  Sex: Male

DRUGS (12)
  1. PAROXETINE HCL [Suspect]
     Indication: OBSESSIVE-COMPULSIVE DISORDER
     Route: 065
     Dates: start: 19991117, end: 20031121
  2. PAROXETINE HCL [Suspect]
     Route: 065
     Dates: start: 20030801
  3. DIAZEPAM [Concomitant]
     Dates: start: 20030124
  4. CITALOPRAM HYDROBROMIDE [Concomitant]
     Dates: start: 20030124
  5. CLOMIPRAMINE HCL [Concomitant]
     Dates: start: 20030319
  6. AMITRIPTYLINE HCL [Concomitant]
     Dates: start: 20030904
  7. ESCITALOPRAM [Concomitant]
     Dates: start: 20040728
  8. OLANZAPINE [Concomitant]
     Dates: start: 20040401, end: 20040701
  9. PROPRANOLOL [Concomitant]
     Dates: start: 20050101
  10. VENLAFAXINE HCL [Concomitant]
     Dates: start: 20051101, end: 20060201
  11. FLUOXETINE HCL [Concomitant]
     Dates: start: 20060201
  12. TEMAZEPAM [Concomitant]
     Dates: start: 20060801

REACTIONS (21)
  - AGGRESSION [None]
  - ANGER [None]
  - ANXIETY [None]
  - DEPRESSED MOOD [None]
  - DEPRESSION [None]
  - DERMATITIS [None]
  - DRUG WITHDRAWAL SYNDROME [None]
  - ECZEMA [None]
  - FATIGUE [None]
  - FEAR [None]
  - FRUSTRATION [None]
  - HYPERHIDROSIS [None]
  - LETHARGY [None]
  - MALAISE [None]
  - MOOD SWINGS [None]
  - NASOPHARYNGITIS [None]
  - NIGHTMARE [None]
  - PANIC ATTACK [None]
  - SOMNOLENCE [None]
  - THIRST [None]
  - UNEVALUABLE EVENT [None]
